FAERS Safety Report 22239050 (Version 1)
Quarter: 2023Q2

REPORT INFORMATION
  Report Type: Spontaneous
  Country: DE (occurrence: DE)
  Receive Date: 20230421
  Receipt Date: 20230421
  Transmission Date: 20230721
  Serious: Yes (Congenital Anomaly, Other)
  Sender: FDA-Public Use
  Company Number: DE-EMBRYOTOX-202120148

PATIENT
  Age: 1 Day
  Sex: Male
  Weight: 2 kg

DRUGS (20)
  1. MESALAMINE [Suspect]
     Active Substance: MESALAMINE
     Indication: Colitis ulcerative
     Dosage: UNK
     Route: 064
     Dates: start: 20211118, end: 20220516
  2. MISOPROSTOL [Concomitant]
     Active Substance: MISOPROSTOL
     Indication: Labour induction
     Route: 064
  3. OXYMETAZOLINE [Concomitant]
     Active Substance: OXYMETAZOLINE
     Indication: Nasopharyngitis
     Dosage: UNK
     Route: 064
  4. THIAMAZOL ARISTO [Concomitant]
     Indication: Hyperthyroidism
     Route: 064
     Dates: start: 20211221, end: 20220103
  5. MEERSALZ [Concomitant]
     Indication: Nasopharyngitis
     Dosage: ON DEMAND
     Route: 064
  6. JELLIN [Concomitant]
     Indication: Eczema
     Dosage: EAR, CA. 1X/MTH FOR 3-4 D
     Route: 064
     Dates: start: 20210901, end: 20220516
  7. BETAMETHASONE DIPROPIONATE;GENTAMICIN;TOLNAFTATE [Concomitant]
     Indication: Dyshidrotic eczema
     Dosage: UNK
     Route: 064
  8. AMBROXOL HYDROCHLORIDE [Concomitant]
     Active Substance: AMBROXOL HYDROCHLORIDE
     Indication: Nasopharyngitis
     Dosage: UNK
     Route: 064
  9. MECLIZINE HYDROCHLORIDE [Concomitant]
     Active Substance: MECLIZINE HYDROCHLORIDE
     Indication: Morning sickness
     Dosage: UNK
     Route: 064
  10. BOOSTRIX [Concomitant]
     Active Substance: TETANUS TOXOID, REDUCED DIPHTHERIA TOXOID AND ACELLULAR PERTUSSIS VACCINE, ADSORBED ANTIGENS
     Indication: Immunisation
     Dosage: UNK
     Route: 064
     Dates: start: 20220421, end: 20220421
  11. ACETYLCYSTEINE [Concomitant]
     Active Substance: ACETYLCYSTEINE
     Indication: Nasopharyngitis
     Dosage: UNK
     Route: 064
  12. PROGESTERONE [Concomitant]
     Active Substance: PROGESTERONE
     Indication: Abortion threatened
     Dosage: UNK
     Route: 064
  13. BUDESONIDE [Concomitant]
     Active Substance: BUDESONIDE
     Indication: Colitis ulcerative
     Dosage: 9 MILLIGRAM, QD
     Route: 064
  14. DIMENHYDRINATE [Concomitant]
     Active Substance: DIMENHYDRINATE
     Indication: Morning sickness
     Dosage: UNK
     Route: 064
  15. BETAGALEN [Concomitant]
     Indication: Dyshidrotic eczema
     Dosage: UNK
     Route: 064
  16. Rennie [Concomitant]
     Indication: Dyspepsia
     Dosage: UNK
     Route: 064
     Dates: start: 20210901, end: 20220516
  17. LORATADINE [Concomitant]
     Active Substance: LORATADINE
     Indication: Hypersensitivity
     Dosage: UNK
     Route: 064
  18. DIMETHICONE [Concomitant]
     Active Substance: DIMETHICONE
     Indication: Flatulence
     Dosage: UNK
     Route: 064
     Dates: start: 20210901, end: 20220516
  19. BROMHEXINE [Concomitant]
     Active Substance: BROMHEXINE
     Indication: Nasopharyngitis
     Dosage: UNK
     Route: 064
  20. PANTOPRAZOLE SODIUM [Concomitant]
     Active Substance: PANTOPRAZOLE SODIUM
     Indication: Dyspepsia
     Dosage: 20 MILLIGRAM, QD
     Route: 064

REACTIONS (3)
  - Craniolacunia [Unknown]
  - Small for dates baby [Recovered/Resolved]
  - Foetal exposure during pregnancy [Unknown]

NARRATIVE: CASE EVENT DATE: 20220501
